FAERS Safety Report 9850237 (Version 2)
Quarter: 2014Q1

REPORT INFORMATION
  Report Type: Spontaneous
  Country: SE (occurrence: SE)
  Receive Date: 20140128
  Receipt Date: 20140220
  Transmission Date: 20141002
  Serious: Yes (Life-Threatening)
  Sender: FDA-Public Use
  Company Number: SE-IPSEN BIOPHARMACEUTICALS, INC.-2014-0407

PATIENT
  Age: 43 Year
  Sex: Female

DRUGS (3)
  1. AZZALURE [Suspect]
     Indication: SKIN WRINKLING
     Dosage: 10 UNITS
     Route: 065
     Dates: start: 20120313, end: 20120313
  2. AZZALURE [Suspect]
     Indication: SKIN WRINKLING
  3. AZZALURE [Suspect]
     Indication: OFF LABEL USE

REACTIONS (2)
  - Anaphylactic shock [Recovered/Resolved]
  - Inappropriate schedule of drug administration [Unknown]
